FAERS Safety Report 14654437 (Version 2)
Quarter: 2018Q2

REPORT INFORMATION
  Report Type: Spontaneous
  Country: US (occurrence: US)
  Receive Date: 20180319
  Receipt Date: 20180409
  Transmission Date: 20180711
  Serious: No
  Sender: FDA-Public Use
  Company Number: US-JNJFOC-20180303945

PATIENT
  Age: 45 Year
  Sex: Female
  Weight: 61.24 kg

DRUGS (6)
  1. TOPAMAX [Suspect]
     Active Substance: TOPIRAMATE
     Indication: NERVE COMPRESSION
     Route: 048
     Dates: start: 19980101
  2. FLEXERIL [Concomitant]
     Active Substance: CYCLOBENZAPRINE HYDROCHLORIDE
     Indication: NECK PAIN
     Route: 065
     Dates: start: 19980101
  3. SYNTHROID [Concomitant]
     Active Substance: LEVOTHYROXINE SODIUM
     Indication: AUTOIMMUNE THYROIDITIS
     Route: 065
     Dates: end: 2018
  4. TOPAMAX [Suspect]
     Active Substance: TOPIRAMATE
     Indication: NECK PAIN
     Route: 048
     Dates: start: 19980101
  5. SYNTHROID [Concomitant]
     Active Substance: LEVOTHYROXINE SODIUM
     Indication: AUTOIMMUNE THYROIDITIS
     Route: 065
     Dates: start: 2018
  6. TOPAMAX [Suspect]
     Active Substance: TOPIRAMATE
     Indication: NECK CRUSHING
     Route: 048
     Dates: start: 19980101

REACTIONS (6)
  - Off label use [Unknown]
  - Product use in unapproved indication [Unknown]
  - Underdose [Unknown]
  - Drug dose omission [Unknown]
  - Wrong technique in product usage process [Unknown]
  - Neck pain [Unknown]

NARRATIVE: CASE EVENT DATE: 19980101
